FAERS Safety Report 18956284 (Version 3)
Quarter: 2021Q1

REPORT INFORMATION
  Report Type: Report from Study
  Country: US (occurrence: US)
  Receive Date: 20210301
  Receipt Date: 20210326
  Transmission Date: 20210420
  Serious: Yes (Hospitalization)
  Sender: FDA-Public Use
  Company Number: US-SEATTLE GENETICS-2021SGN00860

PATIENT
  Sex: Female

DRUGS (3)
  1. TUCATINIB [Suspect]
     Active Substance: TUCATINIB
     Indication: BREAST CANCER FEMALE
     Dosage: 150 MG
     Route: 048
     Dates: start: 20210210
  2. CAPECITABINE. [Concomitant]
     Active Substance: CAPECITABINE
  3. TUCATINIB [Suspect]
     Active Substance: TUCATINIB
     Indication: BREAST CANCER
     Dosage: 50 MG
     Route: 048

REACTIONS (4)
  - Pollakiuria [Unknown]
  - Hospice care [Unknown]
  - Hospitalisation [Unknown]
  - Oedema peripheral [Unknown]
